FAERS Safety Report 21827285 (Version 1)
Quarter: 2023Q1

REPORT INFORMATION
  Report Type: Spontaneous
  Country: US (occurrence: US)
  Receive Date: 20230106
  Receipt Date: 20230106
  Transmission Date: 20230417
  Serious: No
  Sender: FDA-Public Use
  Company Number: US-BIOGEN-2017BI00343868

PATIENT
  Age: 31 Year
  Sex: Female

DRUGS (6)
  1. TECFIDERA [Suspect]
     Active Substance: DIMETHYL FUMARATE
     Indication: Multiple sclerosis
     Dosage: MAINTENANCE DOSE
     Route: 050
     Dates: start: 20151208
  2. TECFIDERA [Suspect]
     Active Substance: DIMETHYL FUMARATE
     Dosage: 2 240 MG PILLS
     Route: 050
  3. SEROQUEL [Suspect]
     Active Substance: QUETIAPINE FUMARATE
     Indication: Product used for unknown indication
     Route: 050
  4. BACLOFEN [Concomitant]
     Active Substance: BACLOFEN
     Route: 050
  5. LYRICA [Concomitant]
     Active Substance: PREGABALIN
     Route: 050
  6. DIAZEPAM [Concomitant]
     Active Substance: DIAZEPAM
     Route: 050

REACTIONS (7)
  - Product dose omission issue [Unknown]
  - Overdose [Not Recovered/Not Resolved]
  - Multiple sclerosis [Unknown]
  - Somnolence [Unknown]
  - Fatigue [Unknown]
  - Burning sensation [Recovered/Resolved]
  - Flushing [Recovered/Resolved]

NARRATIVE: CASE EVENT DATE: 20151208
